FAERS Safety Report 6081801-3 (Version None)
Quarter: 2009Q1

REPORT INFORMATION
  Report Type: 
  Country: None (occurrence: None)
  Receive Date: 20090213
  Receipt Date: 20081216
  Transmission Date: 20090719
  Serious: Yes (Disabling)
  Sender: FDA-Public Use
  Company Number: 2009EU000411

PATIENT
  Age: 34 Year
  Sex: Female
  Weight: 65 kg

DRUGS (1)
  1. SOLIFENACIN(SOLIFENACIN) TABLET, UNKNOWN [Suspect]
     Indication: POLLAKIURIA
     Dosage: 5 MG
     Dates: start: 20080801, end: 20080101

REACTIONS (4)
  - CONTUSION [None]
  - ECCHYMOSIS [None]
  - OEDEMA PERIPHERAL [None]
  - SWELLING [None]
